FAERS Safety Report 6466574-4 (Version None)
Quarter: 2009Q4

REPORT INFORMATION
  Report Type: 
  Country: None (occurrence: None)
  Receive Date: 20091202
  Receipt Date: 20091124
  Transmission Date: 20100525
  Serious: Yes (Hospitalization)
  Sender: FDA-Public Use
  Company Number: BR-ASTRAZENECA-2009SE29152

PATIENT
  Age: 67 Year
  Sex: Female
  Weight: 103 kg

DRUGS (2)
  1. ATACAND [Suspect]
     Indication: HYPERTENSION
     Route: 048
     Dates: start: 20060101, end: 20091101
  2. CAVERDILOL [Concomitant]
     Indication: HEART RATE INCREASED
     Route: 048
     Dates: start: 20060101

REACTIONS (3)
  - ELECTROCARDIOGRAM ABNORMAL [None]
  - PNEUMONIA [None]
  - RESPIRATORY FAILURE [None]
